FAERS Safety Report 4790465-8 (Version None)
Quarter: 2005Q4

REPORT INFORMATION
  Report Type: 
  Country: None (occurrence: None)
  Receive Date: 20051005
  Receipt Date: 20050920
  Transmission Date: 20060501
  Serious: Yes (Death)
  Sender: FDA-Public Use
  Company Number: USA0509108660

PATIENT
  Age: 48 Year
  Sex: Female

DRUGS (5)
  1. CYMBALTA [Suspect]
     Indication: DEPRESSION
     Dosage: 80 MG DAY
  2. ENDOCET [Concomitant]
  3. MORPHINE [Concomitant]
  4. KLONOPIN [Concomitant]
  5. ESZOPICLONE [Concomitant]

REACTIONS (2)
  - COMPLETED SUICIDE [None]
  - LOSS OF CONSCIOUSNESS [None]
